FAERS Safety Report 9379747 (Version 2)
Quarter: 2013Q3

REPORT INFORMATION
  Report Type: Report from Study
  Country: JP (occurrence: JP)
  Receive Date: 20130702
  Receipt Date: 20130807
  Transmission Date: 20140515
  Serious: Yes (Death)
  Sender: FDA-Public Use
  Company Number: JP-JNJFOC-20130614243

PATIENT
  Age: 39 Year
  Sex: Male
  Weight: 60 kg

DRUGS (19)
  1. ONEDURO [Suspect]
     Indication: CANCER PAIN
     Route: 062
     Dates: start: 20121217, end: 20130114
  2. ONEDURO [Suspect]
     Indication: CANCER PAIN
     Route: 062
     Dates: start: 20130115
  3. OPSO [Suspect]
     Indication: CANCER PAIN
     Route: 048
     Dates: start: 20121218, end: 20121222
  4. OPSO [Suspect]
     Indication: CANCER PAIN
     Route: 048
     Dates: start: 20121229, end: 20121230
  5. OPSO [Suspect]
     Indication: CANCER PAIN
     Route: 048
     Dates: start: 20121216, end: 20121217
  6. OPSO [Suspect]
     Indication: CANCER PAIN
     Route: 048
     Dates: start: 20121227, end: 20121227
  7. OPSO [Suspect]
     Indication: CANCER PAIN
     Route: 048
     Dates: start: 20121224, end: 20121226
  8. OPSO [Suspect]
     Indication: CANCER PAIN
     Route: 048
     Dates: start: 20121223, end: 20121223
  9. OPSO [Suspect]
     Indication: CANCER PAIN
     Route: 048
     Dates: start: 20121228, end: 20121228
  10. PACLITAXEL [Concomitant]
     Indication: CANCER PAIN
     Route: 065
     Dates: start: 20121217, end: 20121217
  11. PACLITAXEL [Concomitant]
     Indication: CANCER PAIN
     Route: 065
     Dates: start: 20130104, end: 20130104
  12. URSO [Concomitant]
     Indication: CANCER PAIN
     Route: 048
     Dates: end: 20130125
  13. LACTOMIN [Concomitant]
     Indication: PROPHYLAXIS
     Route: 048
     Dates: end: 20130125
  14. MUCOSTA [Concomitant]
     Indication: PROPHYLAXIS
     Route: 048
     Dates: end: 20130125
  15. TAKEPRON [Concomitant]
     Indication: PROPHYLAXIS
     Route: 048
     Dates: end: 20130125
  16. ALDACTONE A [Concomitant]
     Indication: CANCER PAIN
     Route: 048
     Dates: end: 20130125
  17. LASIX [Concomitant]
     Indication: CANCER PAIN
     Route: 048
     Dates: end: 20130125
  18. LENDORMIN D [Concomitant]
     Indication: CANCER PAIN
     Route: 048
     Dates: end: 20130125
  19. NOVAMIN [Concomitant]
     Indication: CANCER PAIN
     Route: 048
     Dates: end: 20130125

REACTIONS (4)
  - Pancreatic carcinoma [Fatal]
  - Drug intolerance [Unknown]
  - Abdominal distension [Not Recovered/Not Resolved]
  - Vomiting [Recovering/Resolving]
